FAERS Safety Report 8429078-5 (Version None)
Quarter: 2012Q2

REPORT INFORMATION
  Report Type: 
  Country: None (occurrence: None)
  Receive Date: 20120612
  Receipt Date: 20120531
  Transmission Date: 20120825
  Serious: Yes (Other)
  Sender: FDA-Public Use
  Company Number: US-JNJFOC-20120601077

PATIENT
  Sex: Female
  Weight: 66.68 kg

DRUGS (4)
  1. PREDNISONE [Suspect]
     Indication: RHEUMATOID ARTHRITIS
     Route: 048
     Dates: start: 20120501, end: 20120501
  2. PREDNISONE [Suspect]
     Route: 048
  3. REMICADE [Suspect]
     Indication: RHEUMATOID ARTHRITIS
     Route: 042
     Dates: start: 20120101
  4. METHOTREXATE [Concomitant]
     Indication: RHEUMATOID ARTHRITIS
     Route: 048

REACTIONS (7)
  - HAEMORRHAGE INTRACRANIAL [None]
  - JOINT INJURY [None]
  - FALL [None]
  - SKIN DISCOLOURATION [None]
  - HEAD INJURY [None]
  - LACERATION [None]
  - PAIN [None]
